FAERS Safety Report 8002484-9 (Version None)
Quarter: 2011Q4

REPORT INFORMATION
  Report Type: 
  Country: None (occurrence: None)
  Receive Date: 20111222
  Receipt Date: 20111220
  Transmission Date: 20120403
  Serious: Yes (Death)
  Sender: FDA-Public Use
  Company Number: CO-BIOMARINP-002198

PATIENT
  Age: 18 Year
  Sex: Male

DRUGS (1)
  1. NAGLAZYME [Suspect]
     Indication: MUCOPOLYSACCHARIDOSIS VI
     Route: 042
     Dates: start: 20090401

REACTIONS (1)
  - CARDIO-RESPIRATORY ARREST [None]
